FAERS Safety Report 19170481 (Version 1)
Quarter: 2021Q2

REPORT INFORMATION
  Report Type: Report from Study
  Country: DE (occurrence: DE)
  Receive Date: 20210422
  Receipt Date: 20210422
  Transmission Date: 20210717
  Serious: Yes (Hospitalization)
  Sender: FDA-Public Use
  Company Number: DE-SAMSUNG BIOEPIS-SB-2021-09801

PATIENT
  Age: 78 Year
  Sex: Male

DRUGS (2)
  1. MTX [Concomitant]
     Active Substance: METHOTREXATE SODIUM
     Indication: PRODUCT USED FOR UNKNOWN INDICATION
     Route: 065
     Dates: end: 202009
  2. BENEPALI [Suspect]
     Active Substance: ETANERCEPT
     Indication: RHEUMATOID ARTHRITIS
     Route: 065
     Dates: end: 202009

REACTIONS (5)
  - Product use issue [Unknown]
  - Femur fracture [Unknown]
  - Traumatic haemothorax [Unknown]
  - Rib fracture [Unknown]
  - Sarcoma [Unknown]

NARRATIVE: CASE EVENT DATE: 20200821
